FAERS Safety Report 12137302 (Version 1)
Quarter: 2016Q1

REPORT INFORMATION
  Report Type: Spontaneous
  Country: US (occurrence: US)
  Receive Date: 20160302
  Receipt Date: 20160302
  Transmission Date: 20160526
  Serious: No
  Sender: FDA-Public Use
  Company Number: US-ACTAVIS-2015-18469

PATIENT
  Age: 78 Year
  Sex: Female

DRUGS (2)
  1. OXYTROL [Suspect]
     Active Substance: OXYBUTYNIN
     Indication: URINARY INCONTINENCE
     Dosage: 3.9 MG, TWICE WEEKLY OR EVERY 3-4 DAYS
     Route: 062
     Dates: start: 20150824
  2. OXYTROL [Suspect]
     Active Substance: OXYBUTYNIN
     Dosage: 3.9 MG, TWICE WEEKLY OR EVERY 3-4 DAYS
     Route: 062
     Dates: start: 20150821

REACTIONS (4)
  - Product adhesion issue [None]
  - Drug ineffective [Unknown]
  - Device use error [None]
  - Application site irritation [Unknown]

NARRATIVE: CASE EVENT DATE: 20150824
